FAERS Safety Report 6407982-7 (Version None)
Quarter: 2009Q4

REPORT INFORMATION
  Report Type: 
  Country: None (occurrence: None)
  Receive Date: 20091020
  Receipt Date: 20091015
  Transmission Date: 20100525
  Serious: Yes (Other)
  Sender: FDA-Public Use
  Company Number: US-JNJCH-2009027402

PATIENT
  Age: 29 Year
  Sex: Female
  Weight: 81.6 kg

DRUGS (1)
  1. LISTERINE ANTISEPTIC MOUTHWASH [Suspect]
     Indication: DENTAL DISORDER PROPHYLAXIS
     Dosage: TEXT:LESS THAN 1/2 CAPFUL 1X TIME
     Route: 048

REACTIONS (6)
  - APPLICATION SITE IRRITATION [None]
  - DRUG EXPOSURE DURING PREGNANCY [None]
  - GINGIVAL DISCOLOURATION [None]
  - GINGIVAL DISORDER [None]
  - GINGIVAL PAIN [None]
  - HYPOAESTHESIA ORAL [None]
